FAERS Safety Report 9711267 (Version 1)
Quarter: 2013Q4

REPORT INFORMATION
  Report Type: Spontaneous
  Country: US (occurrence: US)
  Receive Date: 20131126
  Receipt Date: 20131126
  Transmission Date: 20140711
  Serious: No
  Sender: FDA-Public Use
  Company Number: US-BRISTOL-MYERS SQUIBB COMPANY-19052497

PATIENT
  Age: 68 Year
  Sex: Male
  Weight: 113.38 kg

DRUGS (1)
  1. BYDUREON [Suspect]
     Indication: DIABETES MELLITUS
     Dosage: THERAPY-8-9 WEEKS
     Route: 058
     Dates: start: 20130423

REACTIONS (1)
  - Injection site swelling [Unknown]
